FAERS Safety Report 14772138 (Version 1)
Quarter: 2018Q2

REPORT INFORMATION
  Report Type: Spontaneous
  Country: SI (occurrence: SI)
  Receive Date: 20180418
  Receipt Date: 20180418
  Transmission Date: 20180711
  Serious: Yes (Other)
  Sender: FDA-Public Use
  Company Number: SI-MERCK KGAA-2045908

PATIENT
  Age: 81 Year
  Sex: Male
  Weight: 98 kg

DRUGS (16)
  1. ALOPURINOL [Suspect]
     Active Substance: ALLOPURINOL
  2. EDEMID [Suspect]
     Active Substance: FUROSEMIDE
  3. ACETYLSALICYLIC ACID [Suspect]
     Active Substance: ASPIRIN
  4. TENZOPRIL [Suspect]
     Active Substance: ZOFENOPRIL
  5. TENZOPRIL [Suspect]
     Active Substance: ZOFENOPRIL
  6. SOBYCOR [Suspect]
     Active Substance: BISOPROLOL FUMARATE
  7. ENTRESTO [Suspect]
     Active Substance: SACUBITRIL\VALSARTAN
  8. NEPHROTRANS [Suspect]
     Active Substance: SODIUM BICARBONATE
  9. NOVOTHYROX [Suspect]
     Active Substance: LEVOTHYROXINE SODIUM
     Indication: PRODUCT USED FOR UNKNOWN INDICATION
  10. NITRO-DUR [Suspect]
     Active Substance: NITROGLYCERIN
  11. EDEMID [Suspect]
     Active Substance: FUROSEMIDE
  12. PLIVIT D3 [Suspect]
     Active Substance: CHOLECALCIFEROL
  13. EDEMID [Suspect]
     Active Substance: FUROSEMIDE
  14. ALPHA D3 [Suspect]
     Active Substance: ALFACALCIDOL
  15. MAREVAN [Suspect]
     Active Substance: WARFARIN SODIUM
  16. PANTOPRAZOL [Suspect]
     Active Substance: PANTOPRAZOLE SODIUM

REACTIONS (16)
  - Anaemia macrocytic [Unknown]
  - Hypothyroidism [Unknown]
  - Vein disorder [Unknown]
  - Macrocytosis [Unknown]
  - Myeloperoxidase deficiency [Unknown]
  - Oedema [Unknown]
  - Right ventricular failure [Not Recovered/Not Resolved]
  - Chronic kidney disease [Unknown]
  - Myocardial ischaemia [Unknown]
  - Folate deficiency [Unknown]
  - Anisocytosis [Unknown]
  - Atrial fibrillation [Unknown]
  - Somnolence [Unknown]
  - Arrhythmia [Unknown]
  - Acute myocardial infarction [Unknown]
  - Hypochromasia [Unknown]
